FAERS Safety Report 9584056 (Version 2)
Quarter: 2013Q4

REPORT INFORMATION
  Report Type: Spontaneous
  Country: US (occurrence: US)
  Receive Date: 20131002
  Receipt Date: 20131002
  Transmission Date: 20140711
  Serious: No
  Sender: FDA-Public Use
  Company Number: US-AMGEN-USASP2013048021

PATIENT
  Age: 61 Year
  Sex: Male
  Weight: 91.61 kg

DRUGS (4)
  1. ENBREL [Suspect]
     Indication: PSORIATIC ARTHROPATHY
     Dosage: 50 MG, QWK
     Route: 058
     Dates: start: 201306, end: 201306
  2. AZATADINE [Concomitant]
     Dosage: 100 MG, BID
     Route: 048
     Dates: start: 2005
  3. METHOTREXATE [Concomitant]
     Dosage: 25 MG, QWK
     Route: 048
     Dates: start: 2003
  4. MELOXICAM [Concomitant]
     Dosage: 15 MG, QD
     Route: 048
     Dates: start: 2010

REACTIONS (3)
  - Drug hypersensitivity [Unknown]
  - Rash generalised [Recovering/Resolving]
  - Injection site rash [Unknown]
